FAERS Safety Report 5684215-0 (Version None)
Quarter: 2008Q1

REPORT INFORMATION
  Report Type: 
  Country: None (occurrence: None)
  Receive Date: 20080328
  Receipt Date: 20080108
  Transmission Date: 20080703
  Serious: No
  Sender: FDA-Public Use
  Company Number: US-AMGEN-KDL256627

PATIENT
  Sex: Female
  Weight: 73.5 kg

DRUGS (5)
  1. NEULASTA [Suspect]
     Indication: CHEMOTHERAPY
     Route: 058
     Dates: start: 20071012, end: 20071126
  2. ATIVAN [Concomitant]
     Dates: start: 20071003
  3. RANITIDINE [Concomitant]
  4. CYTOXAN [Concomitant]
     Dates: start: 20071011, end: 20071126
  5. ADRIAMYCIN PFS [Concomitant]
     Dates: start: 20071011, end: 20071126

REACTIONS (1)
  - RASH GENERALISED [None]
